FAERS Safety Report 7864402-3 (Version None)
Quarter: 2011Q4

REPORT INFORMATION
  Report Type: 
  Country: None (occurrence: None)
  Receive Date: 20111028
  Receipt Date: 20111020
  Transmission Date: 20120403
  Serious: Yes (Other)
  Sender: FDA-Public Use
  Company Number: PHEH2011US05968

PATIENT
  Sex: Male
  Weight: 76.644 kg

DRUGS (12)
  1. RECLAST [Suspect]
     Indication: OSTEOPOROSIS
     Dosage: 5 MG, ANNUALLY
     Route: 042
     Dates: start: 20111003
  2. ADVAIR DISKUS 100/50 [Concomitant]
     Dosage: 115-21 MCG/ INCH, 2 PUFF, UNK
  3. OMEPRAZOLE [Concomitant]
     Dosage: 40 MG, QD
     Route: 048
  4. MUCINEX [Concomitant]
     Dosage: 200 MG, ONCE A DAY
     Route: 048
  5. PROAIR HFA [Concomitant]
     Dosage: 90 MCG/ INCH, UNK
  6. NYSTATIN [Concomitant]
     Dosage: 500000 U, TID,2 TABLETS PE DAY
     Route: 048
  7. FEROTRINSIC [Concomitant]
     Dosage: UNK UKN, BID
     Route: 048
  8. VITAMIN D [Concomitant]
     Dosage: 1000 IU, ONCE ADAY
     Route: 048
  9. TESTOSTERONE [Concomitant]
     Dosage: 200 MG, UNK
     Route: 030
  10. ASCORBIC ACID [Concomitant]
     Dosage: 500 MG, QD
     Route: 048
  11. CALCIUM CITRATE W/VITAMIN D NOS [Concomitant]
     Dosage: 630/ 400 IU, 1 PILL, UNK
     Route: 048
  12. VERAMYST [Concomitant]
     Dosage: 27.5 MCG/ INCH SPRAY, UNK

REACTIONS (3)
  - INFLUENZA LIKE ILLNESS [None]
  - SYNCOPE [None]
  - PRESYNCOPE [None]
